FAERS Safety Report 18721163 (Version 1)
Quarter: 2021Q1

REPORT INFORMATION
  Report Type: Report from Study
  Country: HN (occurrence: HN)
  Receive Date: 20210109
  Receipt Date: 20210109
  Transmission Date: 20210419
  Serious: Yes (Other)
  Sender: FDA-Public Use
  Company Number: NVSC2021HN003152

PATIENT
  Age: 82 Year
  Sex: Male

DRUGS (1)
  1. EXFORGE [Suspect]
     Active Substance: AMLODIPINE BESYLATE\VALSARTAN
     Indication: PRODUCT USED FOR UNKNOWN INDICATION
     Dosage: 5/160 MG, UNK, 2 YEARS AGO OR ONE YEAR AND A HALF AGO APPROXIMATELY
     Route: 065

REACTIONS (2)
  - Hypoacusis [Unknown]
  - Angina unstable [Unknown]
